FAERS Safety Report 6827409-0 (Version None)
Quarter: 2010Q3

REPORT INFORMATION
  Report Type: 
  Country: None (occurrence: None)
  Receive Date: 20100709
  Receipt Date: 20070116
  Transmission Date: 20110219
  Serious: No
  Sender: FDA-Public Use
  Company Number: US-PFIZER INC-2007004622

PATIENT
  Sex: Female
  Weight: 52.16 kg

DRUGS (4)
  1. CHANTIX [Suspect]
     Indication: SMOKING CESSATION THERAPY
     Dates: start: 20061222, end: 20070110
  2. ETANERCEPT [Concomitant]
     Indication: RHEUMATOID ARTHRITIS
  3. MS CONTIN [Concomitant]
  4. LORTAB [Concomitant]

REACTIONS (2)
  - NAUSEA [None]
  - VOMITING [None]
